FAERS Safety Report 20417180 (Version 2)
Quarter: 2022Q1

REPORT INFORMATION
  Report Type: Spontaneous
  Country: US (occurrence: US)
  Receive Date: 20220202
  Receipt Date: 20220215
  Transmission Date: 20220423
  Serious: Yes (Other)
  Sender: FDA-Public Use
  Company Number: US-BAYER-2022A017113

PATIENT
  Age: 17 Month
  Sex: Male

DRUGS (3)
  1. ASPIRIN [Interacting]
     Active Substance: ASPIRIN
     Dosage: UNK
  2. ENOXAPARIN [Interacting]
     Active Substance: ENOXAPARIN
  3. HEPARIN [Interacting]
     Active Substance: HEPARIN SODIUM

REACTIONS (5)
  - Gingival bleeding [None]
  - Labelled drug-drug interaction medication error [None]
  - Ecchymosis [None]
  - Increased tendency to bruise [None]
  - Off label use [None]
